FAERS Safety Report 4601680-8 (Version None)
Quarter: 2005Q1

REPORT INFORMATION
  Report Type: 
  Country: None (occurrence: None)
  Receive Date: 20050131
  Receipt Date: 20040922
  Transmission Date: 20050727
  Serious: No
  Sender: FDA-Public Use
  Company Number: 200417215US

PATIENT
  Age: 35 Year
  Sex: Female

DRUGS (2)
  1. TELITHROMYCIN (KETEK) TABLETS [Suspect]
     Indication: SINUSITIS
     Dosage: 400 MG BID PO
     Route: 048
     Dates: start: 20040831, end: 20040831
  2. ORAL CONTRACEPTIVE NOS [Concomitant]

REACTIONS (4)
  - DIZZINESS [None]
  - HYPERTENSION [None]
  - TACHYCARDIA [None]
  - VISION BLURRED [None]
